FAERS Safety Report 11883670 (Version 3)
Quarter: 2016Q1

REPORT INFORMATION
  Report Type: Spontaneous
  Country: US (occurrence: US)
  Receive Date: 20160101
  Receipt Date: 20160126
  Transmission Date: 20160526
  Serious: Yes (Hospitalization, Other)
  Sender: FDA-Public Use
  Company Number: US-ASTRAZENECA-2015SF30109

PATIENT
  Age: 73 Year
  Sex: Female

DRUGS (1)
  1. BRILINTA [Suspect]
     Active Substance: TICAGRELOR
     Indication: ACUTE CORONARY SYNDROME
     Route: 048

REACTIONS (8)
  - Pneumonia [Unknown]
  - Epistaxis [Unknown]
  - Asthenia [Unknown]
  - Faeces discoloured [Unknown]
  - Oropharyngeal pain [Unknown]
  - Laryngitis [Unknown]
  - Ulcer haemorrhage [Unknown]
  - Abdominal pain upper [Unknown]
